FAERS Safety Report 11658369 (Version 1)
Quarter: 2015Q4

REPORT INFORMATION
  Report Type: Spontaneous
  Country: NL (occurrence: NL)
  Receive Date: 20151026
  Receipt Date: 20151026
  Transmission Date: 20160304
  Serious: Yes (Life-Threatening)
  Sender: FDA-Public Use
  Company Number: NL-ASTRAZENECA-2015SF02360

PATIENT
  Age: 31495 Day
  Sex: Female
  Weight: 80 kg

DRUGS (3)
  1. LOSARTAN. [Concomitant]
     Active Substance: LOSARTAN
     Dosage: 50 MG, EVERYDAY, 1 KEER PER DAG 1 STUK(S)
     Route: 048
     Dates: start: 20140101
  2. SEROQUEL XR [Suspect]
     Active Substance: QUETIAPINE FUMARATE
     Indication: DEPRESSION
     Dosage: 300 MG, EVERYDAY, 1 KEER PER DAG 1 STUK(S)
     Route: 048
     Dates: start: 20150818, end: 20150829
  3. CLOMIPRAMINE [Interacting]
     Active Substance: CLOMIPRAMINE
     Indication: DEPRESSION
     Dosage: 112.5 MG, EVERY DAY, 1 KEER PER DAG 4.5 STUK(S)
     Route: 048
     Dates: start: 19940101, end: 20150829

REACTIONS (2)
  - Serotonin syndrome [Recovered/Resolved]
  - Drug interaction [Recovered/Resolved]

NARRATIVE: CASE EVENT DATE: 20150828
